FAERS Safety Report 15259306 (Version 1)
Quarter: 2018Q3

REPORT INFORMATION
  Report Type: Spontaneous
  Country: US (occurrence: US)
  Receive Date: 20180719
  Receipt Date: 20180719
  Transmission Date: 20181010
  Serious: Yes (Other)
  Sender: FDA-Public Use
  Company Number: None

PATIENT
  Age: 52 Year
  Sex: Male
  Weight: 63.36 kg

DRUGS (2)
  1. RITONAVIR. [Suspect]
     Active Substance: RITONAVIR
     Indication: HIV INFECTION
     Route: 048
     Dates: start: 20180525, end: 20180629
  2. ATAZANAVIR SULFATE. [Suspect]
     Active Substance: ATAZANAVIR SULFATE
     Indication: HIV INFECTION
     Route: 048
     Dates: start: 20180525, end: 20180627

REACTIONS (14)
  - Product substitution issue [None]
  - Drug ineffective [None]
  - Insomnia [None]
  - Abdominal pain [None]
  - Paraesthesia oral [None]
  - Secretion discharge [None]
  - Confusional state [None]
  - Night sweats [None]
  - Urticaria [None]
  - Anxiety [None]
  - Rash [None]
  - Blister [None]
  - Hypoaesthesia [None]
  - Hypersensitivity [None]

NARRATIVE: CASE EVENT DATE: 20180625
